FAERS Safety Report 8385860 (Version 10)
Quarter: 2014Q3

REPORT INFORMATION
  Report Type: Report from Study
  Country: CA (occurrence: CA)
  Receive Date: 20120202
  Receipt Date: 20140717
  Transmission Date: 20150326
  Serious: Yes (Death, Hospitalization, Other)
  Sender: FDA-Public Use
  Company Number: PHHY2012CA001160

PATIENT
  Age: 69 Year
  Sex: Male

DRUGS (4)
  1. SANDOSTATIN LAR DEPOT [Suspect]
     Active Substance: OCTREOTIDE ACETATE
     Dosage: 30 MG, EVERY 4 WEEKS
     Route: 030
  2. AFINITOR [Suspect]
     Active Substance: EVEROLIMUS
     Dosage: 10 MG, QD
     Route: 048
     Dates: start: 20120112, end: 20120119
  3. SANDOSTATIN LAR DEPOT [Suspect]
     Active Substance: OCTREOTIDE ACETATE
     Indication: METASTATIC CARCINOID TUMOUR
     Dosage: 30 MG, QMO
     Route: 030
     Dates: start: 20090521, end: 20111229
  4. AFINITOR [Suspect]
     Active Substance: EVEROLIMUS
     Indication: METASTATIC CARCINOID TUMOUR
     Dosage: 10 MG, DAILY
     Route: 048
     Dates: start: 20120106

REACTIONS (22)
  - Night sweats [Unknown]
  - Malaise [Unknown]
  - Blood pressure increased [Unknown]
  - Peripheral swelling [Unknown]
  - Blood glucose increased [Unknown]
  - Malignant neoplasm progression [Fatal]
  - General physical health deterioration [Unknown]
  - Weight decreased [Unknown]
  - Hypoglycaemia [Not Recovered/Not Resolved]
  - Tremor [Unknown]
  - Pain in extremity [Unknown]
  - Asthenia [Unknown]
  - Insomnia [Unknown]
  - Genital hypoaesthesia [Unknown]
  - Sciatica [Unknown]
  - Bone scan abnormal [Unknown]
  - Abnormal behaviour [Unknown]
  - Paraesthesia [Not Recovered/Not Resolved]
  - Pallor [Unknown]
  - Back pain [Unknown]
  - Abdominal pain [Unknown]
  - Blood glucose fluctuation [Unknown]

NARRATIVE: CASE EVENT DATE: 20131104
